FAERS Safety Report 9512742 (Version 4)
Quarter: 2014Q1

REPORT INFORMATION
  Report Type: Spontaneous
  Country: US (occurrence: US)
  Receive Date: 20130910
  Receipt Date: 20140221
  Transmission Date: 20141002
  Serious: Yes (Other)
  Sender: FDA-Public Use
  Company Number: US-ASTELLAS-2013US007805

PATIENT
  Sex: Male

DRUGS (1)
  1. XTANDI [Suspect]
     Indication: PRODUCT USED FOR UNKNOWN INDICATION
     Dosage: 160 MG, UID/QD
     Route: 048
     Dates: start: 20130404, end: 20140212

REACTIONS (11)
  - Urinary tract disorder [Recovered/Resolved]
  - Stent placement [Unknown]
  - Malignant neoplasm progression [Unknown]
  - Salivary hypersecretion [Not Recovered/Not Resolved]
  - Dysgeusia [Not Recovered/Not Resolved]
  - Paranasal sinus hypersecretion [Unknown]
  - Parosmia [Unknown]
  - Diarrhoea [Unknown]
  - Urine odour abnormal [Not Recovered/Not Resolved]
  - Hyperhidrosis [Unknown]
  - Bladder spasm [Recovered/Resolved]
